FAERS Safety Report 9961287 (Version 1)
Quarter: 2014Q1

REPORT INFORMATION
  Report Type: Spontaneous
  Country: FR (occurrence: FR)
  Receive Date: 20140305
  Receipt Date: 20140305
  Transmission Date: 20141002
  Serious: Yes (Hospitalization)
  Sender: FDA-Public Use
  Company Number: FR-JNJFOC-20140217722

PATIENT
  Age: 49 Year
  Sex: Female
  Weight: 79 kg

DRUGS (4)
  1. REMICADE [Suspect]
     Indication: RHEUMATIC DISORDER
     Route: 042
     Dates: start: 201306, end: 201311
  2. IMUREL [Suspect]
     Indication: CROHN^S DISEASE
     Route: 048
     Dates: end: 20120614
  3. PREDNISONE [Suspect]
     Indication: CROHN^S DISEASE
     Route: 048
  4. HUMIRA [Suspect]
     Indication: RHEUMATIC DISORDER
     Route: 058
     Dates: start: 201212, end: 201302

REACTIONS (3)
  - Bladder transitional cell carcinoma stage I [Unknown]
  - Haematuria [Unknown]
  - Drug ineffective [Unknown]
